FAERS Safety Report 4277984-8 (Version None)
Quarter: 2004Q1

REPORT INFORMATION
  Report Type: 
  Country: None (occurrence: None)
  Receive Date: 20040121
  Receipt Date: 20040105
  Transmission Date: 20041129
  Serious: Yes (Hospitalization)
  Sender: FDA-Public Use
  Company Number: A02200400080

PATIENT
  Age: 50 Year
  Sex: Female

DRUGS (10)
  1. STILNOX (ZOLPIDEM) - TABLET - 10 MG [Suspect]
     Dosage: NI, UNK; ORAL
     Route: 048
  2. LEVOTHYROX - (LEVOTHYROXINE SODIUM) - TABLET - UNIT DOSE: UNKNOWN [Suspect]
     Dosage: NI UNK; ORAL
     Route: 048
  3. VALACYCLOVIR HCL [Suspect]
     Dosage: NI UNK; ORAL
     Route: 048
  4. MABTHERA - (RITUXIMAB) - SOLUTION - UNIT DOSE; UNKNOWN [Suspect]
     Dosage: NI UNK; INTRAVENOUS
     Route: 042
     Dates: start: 20030911
  5. MOPRAL - (MEPRAZOLE) - CAPSULE - 20 MG [Suspect]
     Dosage: NI UNK; ORAL
     Route: 048
  6. (CLOZAPINE) - UNKNWON - UNIT DOSE; UNKNOWN [Suspect]
     Dosage: NI UNK, ORAL
     Route: 048
     Dates: start: 20030630
  7. ACETAMINOPHEN [Concomitant]
  8. MUXOL (AMBROXOL HYDROCHLORIDE) [Concomitant]
  9. GIVALEX (HEXETIDINE/CHOLINE SALICYLATE/CHLOROBUTANOL HEMIHYDRATE) [Concomitant]
  10. DUPHALAC [Concomitant]

REACTIONS (4)
  - AGRANULOCYTOSIS [None]
  - LYMPHOCYTE COUNT DECREASED [None]
  - NEUTROPENIA [None]
  - WHITE BLOOD CELL COUNT DECREASED [None]
